FAERS Safety Report 20410986 (Version 1)
Quarter: 2022Q1

REPORT INFORMATION
  Report Type: Spontaneous
  Country: US (occurrence: None)
  Receive Date: 20220131
  Receipt Date: 20220131
  Transmission Date: 20220423
  Serious: No
  Sender: FDA-Public Use
  Company Number: None

PATIENT
  Age: 48 Year
  Sex: Male

DRUGS (1)
  1. BUPROPION [Suspect]
     Active Substance: BUPROPION
     Dosage: FREQUENCY : DAILY;?
     Route: 048
     Dates: start: 20211013, end: 20211110

REACTIONS (1)
  - Persecutory delusion [None]

NARRATIVE: CASE EVENT DATE: 20211110
